FAERS Safety Report 7031440-2 (Version None)
Quarter: 2010Q4

REPORT INFORMATION
  Report Type: 
  Country: None (occurrence: None)
  Receive Date: 20101006
  Receipt Date: 20100924
  Transmission Date: 20110411
  Serious: Yes (Other)
  Sender: FDA-Public Use
  Company Number: CZ-WATSON-2010-13114

PATIENT
  Age: 57 Year
  Sex: Female

DRUGS (1)
  1. MORPHINE SULFATE INJ [Suspect]
     Indication: SPINAL COLUMN STENOSIS
     Dosage: 5.0 MG, DAILY
     Route: 037

REACTIONS (1)
  - GRANULOMA [None]
